FAERS Safety Report 8130132-6 (Version None)
Quarter: 2012Q1

REPORT INFORMATION
  Report Type: 
  Country: None (occurrence: None)
  Receive Date: 20120210
  Receipt Date: 20120131
  Transmission Date: 20120608
  Serious: Yes (Hospitalization)
  Sender: FDA-Public Use
  Company Number: US-US-EMD SERONO, INC.-7020766

PATIENT
  Sex: Female

DRUGS (7)
  1. ATENOLOL [Concomitant]
  2. REBIF [Suspect]
     Route: 058
  3. BACLOFEN [Concomitant]
  4. ALTACE [Concomitant]
  5. UNSPECIFIED MEDICATIONS [Concomitant]
  6. REBIF [Suspect]
     Indication: RELAPSING-REMITTING MULTIPLE SCLEROSIS
     Route: 058
     Dates: start: 20071218, end: 20100907
  7. AMLODIPINE [Concomitant]

REACTIONS (1)
  - CENTRAL NERVOUS SYSTEM LESION [None]
